FAERS Safety Report 24600611 (Version 3)
Quarter: 2025Q1

REPORT INFORMATION
  Report Type: Spontaneous
  Country: US (occurrence: US)
  Receive Date: 20241110
  Receipt Date: 20250127
  Transmission Date: 20250409
  Serious: No
  Sender: SANOFI AVENTIS
  Company Number: US-SA-2024SA318433

PATIENT
  Age: 61 Year
  Sex: Female

DRUGS (2)
  1. DUPIXENT [Suspect]
     Active Substance: DUPILUMAB
     Indication: Eczema
     Route: 058
     Dates: start: 20240923, end: 20240923
  2. DUPIXENT [Suspect]
     Active Substance: DUPILUMAB
     Dosage: 300 MG, QOW
     Route: 058
     Dates: start: 202410

REACTIONS (7)
  - Blister [Not Recovered/Not Resolved]
  - Eczema [Recovering/Resolving]
  - Pruritus [Not Recovered/Not Resolved]
  - Oral herpes [Recovered/Resolved]
  - Injection site bruising [Unknown]
  - Tooth infection [Unknown]
  - Toothache [Unknown]

NARRATIVE: CASE EVENT DATE: 20240101
